FAERS Safety Report 6266435-X (Version None)
Quarter: 2009Q3

REPORT INFORMATION
  Report Type: 
  Country: None (occurrence: None)
  Receive Date: 20090709
  Receipt Date: 20090629
  Transmission Date: 20100115
  Serious: No
  Sender: FDA-Public Use
  Company Number: DSA_33848_2009

PATIENT
  Sex: Male

DRUGS (3)
  1. LORAZEPAM [Suspect]
     Indication: INSOMNIA
     Dosage: 4 MG 1X/6 HOURS ORAL
     Route: 048
     Dates: start: 20070101
  2. LEXAPRO [Concomitant]
  3. FIORICET [Concomitant]

REACTIONS (9)
  - ANGER [None]
  - DECREASED APPETITE [None]
  - DEPRESSION [None]
  - DIZZINESS [None]
  - MOOD SWINGS [None]
  - NAUSEA [None]
  - PERSONALITY CHANGE [None]
  - SUICIDAL IDEATION [None]
  - VISION BLURRED [None]
